FAERS Safety Report 16661863 (Version 2)
Quarter: 2019Q3

REPORT INFORMATION
  Report Type: Spontaneous
  Country: CN (occurrence: CN)
  Receive Date: 20190802
  Receipt Date: 20190805
  Transmission Date: 20191004
  Serious: Yes (Hospitalization, Other)
  Sender: FDA-Public Use
  Company Number: CN-009507513-1907CHN013543

PATIENT
  Age: 94 Year
  Sex: Female
  Weight: 50 kg

DRUGS (2)
  1. TIENAM [Suspect]
     Active Substance: CILASTATIN SODIUM\IMIPENEM
     Indication: ANTI-INFECTIVE THERAPY
     Dosage: 1 G, TID (Q8H), IVGTT
     Route: 042
     Dates: start: 20190706, end: 20190709
  2. SODIUM CHLORIDE. [Concomitant]
     Active Substance: SODIUM CHLORIDE
     Dosage: 150 MILLILITER, TID, IVGTT, 25ML/H,MICRO PUMP, INDICATION: SOLVENT
     Route: 042
     Dates: start: 20190706, end: 20190709

REACTIONS (5)
  - Psychotic disorder [Recovering/Resolving]
  - Illusion [Recovering/Resolving]
  - Dysphoria [Recovering/Resolving]
  - Initial insomnia [Recovering/Resolving]
  - Psychotic behaviour [Recovering/Resolving]

NARRATIVE: CASE EVENT DATE: 20190709
